FAERS Safety Report 10036718 (Version 2)
Quarter: 2014Q1

REPORT INFORMATION
  Report Type: Spontaneous
  Country: NO (occurrence: NO)
  Receive Date: 20140326
  Receipt Date: 20140326
  Transmission Date: 20141002
  Serious: Yes (Other)
  Sender: FDA-Public Use
  Company Number: NO-AMGEN-NORSP2014011758

PATIENT
  Age: 58 Year
  Sex: Female
  Weight: 65 kg

DRUGS (4)
  1. NEULASTA [Suspect]
     Indication: NEUTROPENIA
     Dosage: 6 MG, 24 H ACCORDING TO SCHEDULE
     Route: 058
     Dates: start: 20131112
  2. CARBOPLATIN [Concomitant]
     Indication: OVARIAN CANCER
     Dosage: UNK
     Route: 042
     Dates: start: 20131008
  3. TAXOL [Concomitant]
     Indication: OVARIAN CANCER
     Dosage: UNK
  4. CAELYX [Concomitant]
     Indication: OVARIAN CANCER
     Dosage: UNK
     Route: 042
     Dates: start: 20131008

REACTIONS (2)
  - Neutropenia [Unknown]
  - Neutrophil count abnormal [Recovered/Resolved]
